FAERS Safety Report 18772736 (Version 1)
Quarter: 2021Q1

REPORT INFORMATION
  Report Type: Not Available
  Country: CN (occurrence: CN)
  Receive Date: 20210122
  Receipt Date: 20210122
  Transmission Date: 20210419
  Serious: Yes (Other)
  Sender: FDA-Public Use
  Company Number: CN-AKORN-159839

PATIENT
  Age: 46 Year
  Sex: Female

DRUGS (1)
  1. MYCOPHENOLATE MOFETIL FOR INJECTION, USP [Suspect]
     Active Substance: MYCOPHENOLATE MOFETIL

REACTIONS (2)
  - Off label use [Recovered/Resolved]
  - Acute generalised exanthematous pustulosis [Recovered/Resolved]
